FAERS Safety Report 11344443 (Version 3)
Quarter: 2015Q4

REPORT INFORMATION
  Report Type: Report from Study
  Country: CA (occurrence: CA)
  Receive Date: 20150806
  Receipt Date: 20151204
  Transmission Date: 20160304
  Serious: Yes (Hospitalization)
  Sender: FDA-Public Use
  Company Number: CA-BIOGENIDEC-2015BI107276

PATIENT
  Age: 25 Year
  Sex: Male

DRUGS (1)
  1. TYSABRI [Suspect]
     Active Substance: NATALIZUMAB
     Indication: RELAPSING-REMITTING MULTIPLE SCLEROSIS
     Route: 042
     Dates: start: 20130930

REACTIONS (1)
  - Complex partial seizures [Not Recovered/Not Resolved]

NARRATIVE: CASE EVENT DATE: 20150710
